FAERS Safety Report 6682328-8 (Version None)
Quarter: 2010Q2

REPORT INFORMATION
  Report Type: 
  Country: None (occurrence: None)
  Receive Date: 20100415
  Receipt Date: 20100331
  Transmission Date: 20101027
  Serious: Yes (Death, Hospitalization, Other)
  Sender: FDA-Public Use
  Company Number: GB-RANBAXY-2009RR-24767

PATIENT
  Age: 69 Year
  Sex: Male

DRUGS (12)
  1. METFORMIN HCL [Suspect]
     Indication: DIABETES MELLITUS
     Dosage: 1000 MG, BID
     Route: 048
     Dates: start: 20090201, end: 20090512
  2. ASPIRIN [Concomitant]
     Dosage: 75 MG, QD
     Route: 048
  3. FERROUS SULFATE TAB [Concomitant]
     Dosage: 200 MG, BID
     Route: 048
  4. FRUSEMIDE [Concomitant]
     Dosage: 40 MG, QD
     Route: 048
  5. QUETIAPINE [Concomitant]
     Dosage: 150 MG, BID
     Dates: end: 20090511
  6. RAMIPRIL [Concomitant]
     Dosage: 10 MG, QD
     Route: 048
     Dates: end: 20090501
  7. SIMVASTATIN [Concomitant]
     Dosage: 40 MG, QD
     Route: 048
  8. SPIRONOLACTONE [Concomitant]
     Dosage: 25 MG, QD
     Route: 048
     Dates: end: 20090430
  9. DOCUSATE [Concomitant]
     Dosage: 100 MG, BID
  10. GLICLAZIDE [Concomitant]
     Dosage: UNK
     Dates: start: 20090401, end: 20090428
  11. PARACETAMOL [Concomitant]
     Dosage: UNK
  12. REPAGLINIDE [Concomitant]
     Dosage: 2 MG, TID
     Dates: end: 20090401

REACTIONS (5)
  - ACIDOSIS [None]
  - BLOOD GLUCOSE INCREASED [None]
  - BLOOD LACTIC ACID INCREASED [None]
  - BODY TEMPERATURE DECREASED [None]
  - LEFT VENTRICULAR FAILURE [None]
